FAERS Safety Report 5388627-4 (Version None)
Quarter: 2007Q3

REPORT INFORMATION
  Report Type: 
  Country: None (occurrence: None)
  Receive Date: 20070716
  Receipt Date: 20070711
  Transmission Date: 20080115
  Serious: Yes (Other)
  Sender: FDA-Public Use
  Company Number: US-ROXANE LABORATORIES, INC-2007-BP-17132RO

PATIENT
  Age: 48 Year
  Sex: Female

DRUGS (4)
  1. DEXAMETHASONE 0.5MG TAB [Suspect]
     Indication: METASTASES TO CENTRAL NERVOUS SYSTEM
     Route: 048
  2. ZOLPIDEM TARTRATE [Suspect]
     Indication: AGITATION
  3. TRAZODONE HCL [Suspect]
     Indication: AGITATION
  4. HALDOL [Suspect]
     Indication: AGITATION

REACTIONS (11)
  - AGITATION [None]
  - AUTONOMIC NERVOUS SYSTEM IMBALANCE [None]
  - DEPRESSED LEVEL OF CONSCIOUSNESS [None]
  - DISORIENTATION [None]
  - EXTENSOR PLANTAR RESPONSE [None]
  - HEART RATE INCREASED [None]
  - HYPERREFLEXIA [None]
  - HYPERTENSION [None]
  - PUPILLARY REFLEX IMPAIRED [None]
  - PUPILS UNEQUAL [None]
  - REVERSIBLE POSTERIOR LEUKOENCEPHALOPATHY SYNDROME [None]
